FAERS Safety Report 10027351 (Version 3)
Quarter: 2014Q2

REPORT INFORMATION
  Report Type: Spontaneous
  Country: US (occurrence: US)
  Receive Date: 20140321
  Receipt Date: 20140423
  Transmission Date: 20141212
  Serious: Yes (Hospitalization, Other)
  Sender: FDA-Public Use
  Company Number: US-009507513-1107USA02554

PATIENT
  Sex: Female
  Weight: 83.92 kg

DRUGS (3)
  1. FOSAMAX [Suspect]
     Indication: OSTEOPOROSIS
     Dosage: 70 MG, QW
     Route: 048
     Dates: start: 1998, end: 20070510
  2. FOSAMAX [Suspect]
     Indication: OSTEOPENIA
     Dosage: 10 MG, QD
     Route: 048
  3. FOSAMAX PLUS D [Suspect]
     Indication: OSTEOPENIA
     Dosage: 70 MG/2800 IU, QW
     Route: 048
     Dates: start: 20070511, end: 20100307

REACTIONS (45)
  - Intramedullary rod insertion [Unknown]
  - Femur fracture [Unknown]
  - Intramedullary rod insertion [Unknown]
  - Fall [Unknown]
  - Lip and/or oral cavity cancer [Unknown]
  - Spinal disorder [Unknown]
  - Atrial fibrillation [Unknown]
  - Femur fracture [Unknown]
  - Femur fracture [Unknown]
  - Wrist fracture [Recovered/Resolved]
  - Hand fracture [Unknown]
  - Dysmenorrhoea [Unknown]
  - Sleep disorder [Unknown]
  - Sleep disorder [Unknown]
  - Gait disturbance [Unknown]
  - Fracture nonunion [Recovering/Resolving]
  - Fall [Unknown]
  - Cardiovascular disorder [Unknown]
  - Nephrolithiasis [Unknown]
  - Hypogonadism [Unknown]
  - Bronchitis [Unknown]
  - Eczema [Not Recovered/Not Resolved]
  - Skin infection [Unknown]
  - Sciatica [Unknown]
  - Viral infection [Unknown]
  - Glucose tolerance impaired [Unknown]
  - Chronic obstructive pulmonary disease [Unknown]
  - Sleep apnoea syndrome [Unknown]
  - Fall [Unknown]
  - Fall [Unknown]
  - Tendonitis [Unknown]
  - Osteomalacia [Unknown]
  - Vulvovaginal dryness [Unknown]
  - Infection [Unknown]
  - Hormone level abnormal [Unknown]
  - Refusal of treatment by patient [Unknown]
  - Blood cholesterol increased [Unknown]
  - Mania [Unknown]
  - Osteoarthritis [Not Recovered/Not Resolved]
  - Foot fracture [Unknown]
  - Muscle spasms [Unknown]
  - Pain in extremity [Not Recovered/Not Resolved]
  - Pain in extremity [Unknown]
  - Pain in extremity [Unknown]
  - Aphthous stomatitis [Unknown]
